FAERS Safety Report 4962605-9 (Version None)
Quarter: 2006Q1

REPORT INFORMATION
  Report Type: 
  Country: None (occurrence: None)
  Receive Date: 20060201
  Receipt Date: 20051107
  Transmission Date: 20060701
  Serious: No
  Sender: FDA-Public Use
  Company Number: 2005PV004107

PATIENT
  Age: 61 Year
  Sex: Female
  Weight: 158.759 kg

DRUGS (8)
  1. BYETTA [Suspect]
     Indication: DIABETES MELLITUS NON-INSULIN-DEPENDENT
     Dosage: SEE IMAGE
     Route: 058
     Dates: start: 20050905, end: 20051001
  2. BYETTA [Suspect]
     Indication: DIABETES MELLITUS NON-INSULIN-DEPENDENT
     Dosage: SEE IMAGE
     Route: 058
     Dates: start: 20051001
  3. LEXAPRO [Concomitant]
  4. CYMBALTA [Concomitant]
  5. GLUCOPHAGE XR [Concomitant]
  6. AVANDIA [Concomitant]
  7. GLUCOVANCE [Concomitant]
  8. STARLIX [Concomitant]

REACTIONS (4)
  - INSOMNIA [None]
  - OEDEMA PERIPHERAL [None]
  - PAIN IN EXTREMITY [None]
  - RASH [None]
